FAERS Safety Report 9833487 (Version 2)
Quarter: 2016Q1

REPORT INFORMATION
  Report Type: Report from Study
  Country: US (occurrence: US)
  Receive Date: 20140122
  Receipt Date: 20160208
  Transmission Date: 20160526
  Serious: Yes (Other)
  Sender: FDA-Public Use
  Company Number: US-ROCHE-1334468

PATIENT
  Sex: Female

DRUGS (5)
  1. LUCENTIS [Suspect]
     Active Substance: RANIBIZUMAB
     Indication: NEOVASCULAR AGE-RELATED MACULAR DEGENERATION
     Dosage: RIGHT EYE
     Route: 050
     Dates: start: 2010
  2. LUCENTIS [Suspect]
     Active Substance: RANIBIZUMAB
     Indication: DRY AGE-RELATED MACULAR DEGENERATION
     Dosage: RIGHT EYE
     Route: 050
  3. BABY ASPIRIN [Concomitant]
     Active Substance: ASPIRIN
  4. ZETIA [Concomitant]
     Active Substance: EZETIMIBE
  5. PLAVIX [Concomitant]
     Active Substance: CLOPIDOGREL BISULFATE

REACTIONS (8)
  - Depression [Unknown]
  - Gout [Unknown]
  - Ligament rupture [Unknown]
  - Age-related macular degeneration [Unknown]
  - Cardiac valve disease [Unknown]
  - Visual impairment [Unknown]
  - Blindness [Unknown]
  - Visual acuity reduced [Unknown]
